FAERS Safety Report 13242966 (Version 1)
Quarter: 2017Q1

REPORT INFORMATION
  Report Type: Spontaneous
  Country: US (occurrence: US)
  Receive Date: 20170217
  Receipt Date: 20170217
  Transmission Date: 20170428
  Serious: Yes (Hospitalization)
  Sender: FDA-Public Use
  Company Number: US-PFIZER INC-2016506142

PATIENT
  Age: 69 Year
  Sex: Female

DRUGS (54)
  1. REGLAN [Concomitant]
     Active Substance: METOCLOPRAMIDE HYDROCHLORIDE
     Indication: VOMITING
  2. NARCAN [Concomitant]
     Active Substance: NALOXONE HYDROCHLORIDE
     Indication: RESPIRATORY RATE DECREASED
  3. COMPAZINE [Concomitant]
     Active Substance: PROCHLORPERAZINE MALEATE
     Indication: VOMITING
  4. DECADRON [Concomitant]
     Active Substance: DEXAMETHASONE
     Dosage: 4 MG, 2X/DAY (WITH MEALS. THE DAY BEFORE, THE DAY OF AND THE DAY AFTER TREATMENT)
     Route: 048
  5. ROBITUSSIN A C [Concomitant]
     Indication: COUGH
     Dosage: UNK UNK, AS NEEDED (CODEINE PHOSPHATE 10MG, GUAIFENESIN 100MG/5ML) (5-10 ML EVERY 4 HOURS)
     Route: 048
  6. NASACORT [Concomitant]
     Active Substance: TRIAMCINOLONE ACETONIDE
     Dosage: UNK UNK, 1X/DAY (EVERY MORNING)
     Route: 045
  7. DULCOLAX NOS [Concomitant]
     Active Substance: BISACODYL OR DOCUSATE SODIUM
     Indication: CONSTIPATION
     Dosage: 10 MG, AS NEEDED (DAILY)
     Route: 054
  8. COMPAZINE [Concomitant]
     Active Substance: PROCHLORPERAZINE MALEATE
     Indication: NAUSEA
     Dosage: 2 ML, AS NEEDED (EVERY 6 HOURS)
     Route: 042
  9. PROBIOTIC [Concomitant]
     Active Substance: PROBIOTICS NOS
     Dosage: 1 DF, 1X/DAY (20 BILLION CELL)
     Route: 048
  10. XALKORI [Suspect]
     Active Substance: CRIZOTINIB
     Indication: LUNG ADENOCARCINOMA METASTATIC
     Dosage: 250 MG, 2X/DAY
     Route: 048
     Dates: start: 201611
  11. LOVENOX [Concomitant]
     Active Substance: ENOXAPARIN SODIUM
     Dosage: 80 MG, 2X/DAY (EVERY 12 HOURS)
     Route: 058
  12. ATIVAN [Concomitant]
     Active Substance: LORAZEPAM
     Indication: ANXIETY
     Dosage: 0.5 MG, AS NEEDED (EVRY 6 HOURS)
     Route: 048
  13. COMPAZINE [Concomitant]
     Active Substance: PROCHLORPERAZINE MALEATE
     Indication: NAUSEA
     Dosage: 10 MG, AS NEEDED (EVERY 6 HOURS, MAXIMUN OF 40 MG (4 TABS) PER 24 HOURS)
     Route: 048
  14. DUONEB [Concomitant]
     Active Substance: ALBUTEROL SULFATE\IPRATROPIUM BROMIDE
     Indication: COUGH
     Dosage: 3 ML, AS NEEDED (IPRATROPIUM BROMIDE 0.5 MG, SALBUTAMOL SULFATE 2.5 (3) MG/3ML) (EVERY 4 HOURS)
     Route: 055
  15. REGLAN [Concomitant]
     Active Substance: METOCLOPRAMIDE HYDROCHLORIDE
     Indication: NAUSEA
     Dosage: 1 ML, AS NEEDED (EVERY 6 HOURS)
     Route: 042
  16. MELATONIN [Concomitant]
     Active Substance: MELATONIN
     Dosage: 5 MG, 1X/DAY (AT BEDTIME)
     Route: 048
  17. NARCAN [Concomitant]
     Active Substance: NALOXONE HYDROCHLORIDE
     Indication: SEDATION
     Dosage: UNK (1 DOSE, REPEAT AFTER 3 MINUTES IF NO OR MINIMAL RESPONSE)
     Route: 045
  18. ROXICODONE [Concomitant]
     Active Substance: OXYCODONE HYDROCHLORIDE
     Indication: PAIN
     Dosage: UNK UNK, AS NEEDED (1-2 TABS, EVERY 4 HOURS)
     Route: 048
  19. IMODIUM [Concomitant]
     Active Substance: LOPERAMIDE HYDROCHLORIDE
     Indication: DIARRHOEA
     Dosage: 16 MG, DAILY (TAKE 4 MG BY MOUTH WITH 1ST LOOSE STOOL, THEN 2 MG WITH EACH SUBSEQUENT LOOSE STOOL)
     Route: 048
  20. MORPHINE [Concomitant]
     Active Substance: MORPHINE
     Indication: PAIN
     Dosage: 1.3 ML, AS NEEDED (EVERY 3 HOURS, TAKE 2.5-5MG)
     Route: 048
  21. PRILOSEC [Concomitant]
     Active Substance: OMEPRAZOLE MAGNESIUM
     Dosage: 20 MG, 1X/DAY  (TAKE 1 HOUR BEFORE A MEAL)
     Route: 048
  22. COMPAZINE [Concomitant]
     Active Substance: PROCHLORPERAZINE MALEATE
     Indication: VOMITING
  23. DUONEB [Concomitant]
     Active Substance: ALBUTEROL SULFATE\IPRATROPIUM BROMIDE
     Indication: DYSPNOEA
     Dosage: 3 ML, AS NEEDED (EVERY 6 HOURS)
  24. ZOFRAN [Concomitant]
     Active Substance: ONDANSETRON HYDROCHLORIDE
     Indication: NAUSEA
     Dosage: 2 ML, AS NEEDED (EVERY 8 HOURS)
     Route: 042
  25. DOCUSATE SODIUM + SENNA [Concomitant]
     Active Substance: DOCUSATE SODIUM\SENNOSIDE A\SENNOSIDE B
     Indication: CONSTIPATION
     Dosage: 1 DF, DAILY (DOCUSATE SODIUM 50MG/SENNOSIDE A+B 8.6 MG)
     Route: 048
  26. LORATADINE. [Concomitant]
     Active Substance: LORATADINE
     Dosage: 10 MG, 1X/DAY
     Route: 048
  27. FOLIC ACID. [Concomitant]
     Active Substance: FOLIC ACID
     Dosage: 1 MG, DAILY
     Route: 048
  28. ROBITUSSIN A C [Concomitant]
     Dosage: 5 ML, AS NEEDED (EVERY 4 HOURS, MAX DOSE 60 ML PER 24 HRS)
     Route: 048
  29. TESSALON [Concomitant]
     Active Substance: BENZONATATE
     Dosage: 100 MG, 3X/DAY
     Route: 048
  30. PREVACID [Concomitant]
     Active Substance: LANSOPRAZOLE
     Dosage: 15 MG, DAILY
     Route: 048
  31. ROXANOL [Concomitant]
     Active Substance: MORPHINE SULFATE
     Indication: DYSPNOEA
     Dosage: UNK UNK, AS NEEDED (0.25-0.5 ML EVERY 3 HOURS)
     Route: 048
  32. ROXANOL [Concomitant]
     Active Substance: MORPHINE SULFATE
     Indication: PAIN
  33. ZOFRAN [Concomitant]
     Active Substance: ONDANSETRON HYDROCHLORIDE
     Indication: NAUSEA
     Dosage: 4 MG, AS NEEDED (EVERY 8 HOURS)
     Route: 048
  34. ZOFRAN [Concomitant]
     Active Substance: ONDANSETRON HYDROCHLORIDE
     Indication: VOMITING
  35. METAMUCIL [Concomitant]
     Active Substance: PLANTAGO SEED
     Dosage: UNK UNK, 1X/DAY (1 TSP)
     Route: 048
  36. REMERON [Concomitant]
     Active Substance: MIRTAZAPINE
     Dosage: 0.5 MG, 1X/DAY (0.5 TABLETS AT BEDTIME)
     Route: 048
  37. SENNA [Concomitant]
     Active Substance: SENNA LEAF\SENNOSIDES\SENNOSIDES A AND B
     Indication: CONSTIPATION
     Dosage: 8.6 MG, AS NEEDED (ONCE DAILY)
     Route: 048
  38. LOMOTIL [Concomitant]
     Active Substance: ATROPINE SULFATE\DIPHENOXYLATE HYDROCHLORIDE
     Indication: DIARRHOEA
     Dosage: 1 DF, AS NEEDED (ATROPINE SULFATE 0.025MG/DIPHENOXYLATE HYDROCHLORIDE 2.5 MG, 4 TIMES DAILY)
     Route: 048
  39. LORATADINE AND PSEUDOEPHEDRINE SULFATE [Concomitant]
     Active Substance: LORATADINE\PSEUDOEPHEDRINE SULFATE
     Dosage: 1 DF, DAILY (LORATADINE 10MG/ PSEUDOEPHEDRINE 240 MG)
     Route: 048
  40. ZOFRAN [Concomitant]
     Active Substance: ONDANSETRON HYDROCHLORIDE
     Indication: NAUSEA
     Dosage: 8 MG, 3X/DAY (FOR 3 DAYS FOLLOWING EACH CHEMOTHERAPY TREATMENT)
     Route: 048
  41. ZOFRAN [Concomitant]
     Active Substance: ONDANSETRON HYDROCHLORIDE
     Indication: VOMITING
     Dosage: 8 MG, AS NEEDED (EVERY 8 HOURS AS NEEDED THEREAFTER)
     Route: 048
  42. ZOFRAN [Concomitant]
     Active Substance: ONDANSETRON HYDROCHLORIDE
     Dosage: UNK
  43. DUONEB [Concomitant]
     Active Substance: ALBUTEROL SULFATE\IPRATROPIUM BROMIDE
     Indication: WHEEZING
     Dosage: 3 ML, EVERY 4 HRS
     Route: 055
  44. MIRALAX [Concomitant]
     Active Substance: POLYETHYLENE GLYCOL 3350
     Indication: CONSTIPATION
     Dosage: 17 G, AS NEEDED (DAILY)
     Route: 048
  45. MIRALAX [Concomitant]
     Active Substance: POLYETHYLENE GLYCOL 3350
     Dosage: 17 G, 2X/DAY
  46. DOCUSATE SODIUM + SENNA [Concomitant]
     Active Substance: DOCUSATE SODIUM\SENNOSIDE A\SENNOSIDE B
     Dosage: 2 DF, AS NEEDED (TWO TIMES DAILY)
     Route: 048
  47. LASIX [Concomitant]
     Active Substance: FUROSEMIDE
     Dosage: 20 MG, 1X/DAY (EVERY MORNING)
     Route: 048
  48. NASOCORT [Concomitant]
     Active Substance: BUDESONIDE
     Dosage: UNK UNK, 1X/DAY (2 SPRAYS INTO BOTH NOSTRILS)
     Route: 055
  49. DUONEB [Concomitant]
     Active Substance: ALBUTEROL SULFATE\IPRATROPIUM BROMIDE
     Indication: BRONCHOSPASM
  50. ROXANOL [Concomitant]
     Active Substance: MORPHINE SULFATE
     Indication: COMPLICATION ASSOCIATED WITH DEVICE
  51. NARCAN [Concomitant]
     Active Substance: NALOXONE HYDROCHLORIDE
     Indication: SEDATION
     Dosage: 0.5 ML, AS NEEDED
     Route: 042
  52. ZOFRAN [Concomitant]
     Active Substance: ONDANSETRON HYDROCHLORIDE
     Indication: VOMITING
  53. PROVENTIL [Concomitant]
     Active Substance: ALBUTEROL
     Indication: LUNG NEOPLASM MALIGNANT
     Dosage: 3 ML, AS NEEDED (VIA A NEBULIZER EVERY 4 HOURS)
     Route: 055
  54. ALBUTEROL HFA [Concomitant]
     Active Substance: ALBUTEROL SULFATE
     Indication: LUNG NEOPLASM MALIGNANT
     Dosage: UNK UNK, AS NEEDED (ACTUATION INHALER, 1-2 PUFFS BY MOUTH EVERY 4 HOURS)
     Route: 055

REACTIONS (2)
  - Urinary tract infection [Unknown]
  - Nervous system disorder [Unknown]
